FAERS Safety Report 5958865-8 (Version None)
Quarter: 2008Q4

REPORT INFORMATION
  Report Type: 
  Country: None (occurrence: None)
  Receive Date: 20081117
  Receipt Date: 20081106
  Transmission Date: 20090506
  Serious: Yes (Death)
  Sender: FDA-Public Use
  Company Number: TUK2008A00144

PATIENT

DRUGS (1)
  1. PIOGLITAZONE HCL [Suspect]
     Indication: DIABETES MELLITUS

REACTIONS (3)
  - INTERMITTENT CLAUDICATION [None]
  - PERIPHERAL REVASCULARISATION [None]
  - SEPSIS [None]
